FAERS Safety Report 7554361-5 (Version None)
Quarter: 2011Q2

REPORT INFORMATION
  Report Type: 
  Country: None (occurrence: None)
  Receive Date: 20110617
  Receipt Date: 20110615
  Transmission Date: 20111010
  Serious: Yes (Hospitalization)
  Sender: FDA-Public Use
  Company Number: US-SANOFI-AVENTIS-2011SA037077

PATIENT
  Sex: Male

DRUGS (4)
  1. COREG [Concomitant]
  2. PLAVIX [Suspect]
     Route: 065
     Dates: start: 20060101
  3. ZOCOR [Concomitant]
  4. ASPIRIN [Concomitant]

REACTIONS (4)
  - ABASIA [None]
  - CORONARY ARTERY OCCLUSION [None]
  - ARRHYTHMIA [None]
  - DYSPNOEA [None]
